FAERS Safety Report 4359654-0 (Version None)
Quarter: 2004Q2

REPORT INFORMATION
  Report Type: 
  Country: None (occurrence: None)
  Receive Date: 20040512
  Receipt Date: 20040430
  Transmission Date: 20050107
  Serious: No
  Sender: FDA-Public Use
  Company Number: 2004UW08997

PATIENT
  Age: 43 Year
  Sex: Female

DRUGS (2)
  1. TAMOXIFEN CITRATE [Suspect]
     Indication: BREAST CANCER
  2. FOXAMAX [Concomitant]

REACTIONS (5)
  - DEPRESSION [None]
  - HYPOAESTHESIA [None]
  - MYALGIA [None]
  - OVARIAN DISORDER [None]
  - PAIN IN EXTREMITY [None]
